FAERS Safety Report 9610867 (Version 1)
Quarter: 2013Q4

REPORT INFORMATION
  Report Type: Spontaneous
  Country: JP (occurrence: JP)
  Receive Date: 20131009
  Receipt Date: 20131009
  Transmission Date: 20140711
  Serious: Yes (Death, Other)
  Sender: FDA-Public Use
  Company Number: PHHY2013JP110818

PATIENT
  Sex: Female

DRUGS (3)
  1. EPIRUBICIN [Suspect]
     Indication: BREAST CANCER
     Dosage: 90 MG/M2, UNK
  2. CYCLOPHOSPHAMIDE [Suspect]
     Indication: BREAST CANCER
     Dosage: 600 MG/M2, UNK
  3. VINORELBINE [Concomitant]

REACTIONS (4)
  - Hepatic failure [Fatal]
  - Hepatic function abnormal [Fatal]
  - Leukopenia [Unknown]
  - Pyrexia [Unknown]
